FAERS Safety Report 4961261-3 (Version None)
Quarter: 2006Q1

REPORT INFORMATION
  Report Type: 
  Country: None (occurrence: None)
  Receive Date: 20060329
  Receipt Date: 20060316
  Transmission Date: 20060701
  Serious: Yes (Hospitalization)
  Sender: FDA-Public Use
  Company Number: ZONI002297

PATIENT
  Age: 65 Year
  Sex: Female

DRUGS (3)
  1. ZONISAMIDE [Suspect]
     Indication: CONVULSION
     Dosage: 100 MG, ORAL
     Route: 048
     Dates: start: 20051219
  2. DEPAS (ETIZOLAM) [Concomitant]
  3. LOSARTAN POTASSIUM [Concomitant]

REACTIONS (9)
  - ALANINE AMINOTRANSFERASE INCREASED [None]
  - ASPARTATE AMINOTRANSFERASE INCREASED [None]
  - DRUG ERUPTION [None]
  - DRUG HYPERSENSITIVITY [None]
  - ERYTHEMA [None]
  - MUCOSAL HAEMORRHAGE [None]
  - PHARYNX DISCOMFORT [None]
  - PRURITUS [None]
  - SWELLING FACE [None]
